FAERS Safety Report 21890902 (Version 1)
Quarter: 2023Q1

REPORT INFORMATION
  Report Type: Spontaneous
  Country: SK (occurrence: SK)
  Receive Date: 20230120
  Receipt Date: 20230120
  Transmission Date: 20230418
  Serious: No
  Sender: FDA-Public Use
  Company Number: SK-BAXTER-2023BAX010569

PATIENT
  Sex: Female

DRUGS (4)
  1. ARTISS [Suspect]
     Active Substance: FIBRINOGEN HUMAN\THROMBIN HUMAN
     Indication: Tissue sealing
     Dosage: AT UNSPECIFIED DOSE AT UNSPECIFIED FREQUNECY, STRENGTH: 4 ML
     Route: 065
     Dates: start: 20221219
  2. ARTISS [Suspect]
     Active Substance: FIBRINOGEN HUMAN\THROMBIN HUMAN
     Indication: Tissue sealing
     Dosage: AT UNSPECIFIED DOSE AT UNSPECIFIED FREQUNECY, STRENGTH: 4 ML
     Route: 065
     Dates: start: 20221219
  3. ARTISS [Suspect]
     Active Substance: FIBRINOGEN HUMAN\THROMBIN HUMAN
     Indication: Face lift
  4. ARTISS [Suspect]
     Active Substance: FIBRINOGEN HUMAN\THROMBIN HUMAN
     Indication: Face lift

REACTIONS (4)
  - Face oedema [Recovering/Resolving]
  - Fluid retention [Recovering/Resolving]
  - Poor quality product administered [Unknown]
  - Product physical consistency issue [Unknown]
